FAERS Safety Report 25612162 (Version 1)
Quarter: 2025Q3

REPORT INFORMATION
  Report Type: Spontaneous
  Country: TH (occurrence: TH)
  Receive Date: 20250728
  Receipt Date: 20250728
  Transmission Date: 20251020
  Serious: Yes (Hospitalization, Other)
  Sender: GLAND PHARMA LTD
  Company Number: TH-GLANDPHARMA-TH-2025GLNLIT01625

PATIENT
  Age: 64 Year
  Sex: Female
  Weight: 64 kg

DRUGS (8)
  1. LEVOFLOXACIN [Suspect]
     Active Substance: LEVOFLOXACIN
     Indication: Spondylitis
     Route: 065
  2. ETHAMBUTOL [Suspect]
     Active Substance: ETHAMBUTOL HYDROCHLORIDE
     Indication: Spondylitis
     Route: 065
  3. ETHAMBUTOL [Suspect]
     Active Substance: ETHAMBUTOL HYDROCHLORIDE
     Route: 065
  4. AMIKACIN [Suspect]
     Active Substance: AMIKACIN
     Indication: Spondylitis
     Route: 042
  5. ISONIAZID [Concomitant]
     Active Substance: ISONIAZID
     Route: 065
  6. RIFAMPIN [Concomitant]
     Active Substance: RIFAMPIN
     Route: 065
  7. PYRAZINAMIDE [Concomitant]
     Active Substance: PYRAZINAMIDE
     Route: 065
  8. SODIUM CHLORIDE [Concomitant]
     Active Substance: SODIUM CHLORIDE
     Indication: Product used for unknown indication
     Route: 065

REACTIONS (4)
  - Renal tubular necrosis [Recovering/Resolving]
  - Acute kidney injury [Recovering/Resolving]
  - Crystal nephropathy [Recovering/Resolving]
  - Product use in unapproved indication [Unknown]
